FAERS Safety Report 23975276 (Version 3)
Quarter: 2024Q3

REPORT INFORMATION
  Report Type: Spontaneous
  Country: US (occurrence: US)
  Receive Date: 20240614
  Receipt Date: 20240802
  Transmission Date: 20241017
  Serious: Yes (Hospitalization, Other)
  Sender: HIKMA
  Company Number: US-HIKMA PHARMACEUTICALS USA INC.-US-H14001-24-05142

PATIENT
  Age: 30 Year
  Sex: Female
  Weight: 88.8 kg

DRUGS (6)
  1. BRENTUXIMAB VEDOTIN [Suspect]
     Active Substance: BRENTUXIMAB VEDOTIN
     Indication: Primary mediastinal large B-cell lymphoma
     Dosage: 1.8 MILLIGRAM/KILOGRAM, 3W
     Route: 042
     Dates: start: 20240112, end: 20240424
  2. CYCLOPHOSPHAMIDE [Suspect]
     Active Substance: CYCLOPHOSPHAMIDE
     Indication: Primary mediastinal large B-cell lymphoma
     Dosage: 750 MILLIGRAM/SQ. METER, ONCE PER CYCLE
     Route: 042
     Dates: start: 20240222, end: 20240424
  3. DOXORUBICIN [Suspect]
     Active Substance: DOXORUBICIN
     Indication: Primary mediastinal large B-cell lymphoma
     Dosage: 50 MILLIGRAM/SQ. METER, ONCE PER CYCLE
     Route: 042
     Dates: start: 20240222, end: 20240424
  4. NIVOLUMAB [Suspect]
     Active Substance: NIVOLUMAB
     Indication: Primary mediastinal large B-cell lymphoma
     Dosage: 240 MILLIGRAM, 3W
     Route: 042
     Dates: start: 20240112, end: 20240424
  5. PREDNISONE [Suspect]
     Active Substance: PREDNISONE
     Indication: Primary mediastinal large B-cell lymphoma
     Dosage: 100 MILLIGRAM, DAY 1-5 EVERY CYCLE
     Route: 048
     Dates: start: 20240222, end: 20240424
  6. RITUXIMAB [Suspect]
     Active Substance: RITUXIMAB
     Indication: Primary mediastinal large B-cell lymphoma
     Dosage: 375 MILLIGRAM/SQ. METER, ONCE PER CYCLE
     Route: 042
     Dates: start: 20240222, end: 20240424

REACTIONS (3)
  - Febrile neutropenia [Recovered/Resolved]
  - Cough [Unknown]
  - Nasal congestion [Unknown]

NARRATIVE: CASE EVENT DATE: 20240501
